FAERS Safety Report 8885802 (Version 4)
Quarter: 2013Q3

REPORT INFORMATION
  Report Type: Spontaneous
  Country: DK (occurrence: DK)
  Receive Date: 20121102
  Receipt Date: 20130716
  Transmission Date: 20140515
  Serious: Yes (Hospitalization)
  Sender: FDA-Public Use
  Company Number: DK-PFIZER INC-2012270528

PATIENT
  Age: 49 Year
  Sex: Male
  Weight: 128 kg

DRUGS (6)
  1. LYRICA [Suspect]
     Indication: NEURALGIA
     Dosage: 150 MG, UNK
     Route: 048
     Dates: start: 201105, end: 20110823
  2. AMITRIPTYLINE ^DAK^ [Suspect]
     Indication: PAIN
     Dosage: 10 MG, 1X/DAY
     Dates: start: 201103, end: 20110711
  3. AMITRIPTYLINE ^DAK^ [Suspect]
     Dosage: 30 MG, 1X/DAY
     Dates: end: 201109
  4. NORITREN [Suspect]
     Indication: PAIN
     Dosage: 10-25 MG, 2 TIMES DAILY
     Dates: start: 20110526, end: 20110823
  5. MIRTAZAPINE [Concomitant]
     Indication: DEPRESSION
     Dosage: 30 MG, 1X/DAY
     Route: 048
     Dates: start: 20110503
  6. GABAPENTIN [Concomitant]
     Dosage: 600-900 MG DAILY
     Route: 048
     Dates: start: 20110526, end: 20110711

REACTIONS (6)
  - Bundle branch block left [Recovered/Resolved]
  - Chest pain [Recovered/Resolved with Sequelae]
  - Tachycardia [Recovered/Resolved]
  - Ejection fraction decreased [Not Recovered/Not Resolved]
  - Dyspnoea [Recovered/Resolved with Sequelae]
  - Ventricular dyskinesia [Not Recovered/Not Resolved]
